FAERS Safety Report 24543766 (Version 1)
Quarter: 2024Q4

REPORT INFORMATION
  Report Type: Spontaneous
  Country: US (occurrence: US)
  Receive Date: 20241024
  Receipt Date: 20241024
  Transmission Date: 20250114
  Serious: No
  Sender: ELI LILLY AND COMPANY
  Company Number: US-ELI_LILLY_AND_COMPANY-US202410014930

PATIENT
  Age: 13 Year
  Sex: Male

DRUGS (2)
  1. EBGLYSS [Suspect]
     Active Substance: LEBRIKIZUMAB-LBKZ
     Indication: Dermatitis atopic
     Dosage: UNK UNK, UNKNOWN
     Route: 065
     Dates: start: 20241004
  2. ZORYVE [Concomitant]
     Active Substance: ROFLUMILAST
     Indication: Product used for unknown indication
     Dosage: UNK UNK, UNKNOWN
     Route: 065

REACTIONS (1)
  - Conjunctivitis [Unknown]

NARRATIVE: CASE EVENT DATE: 20241018
